FAERS Safety Report 10128368 (Version 1)
Quarter: 2014Q2

REPORT INFORMATION
  Report Type: Spontaneous
  Country: US (occurrence: US)
  Receive Date: 20140428
  Receipt Date: 20140428
  Transmission Date: 20141212
  Serious: No
  Sender: FDA-Public Use
  Company Number: US-BIOGENIDEC-2014BI036907

PATIENT
  Age: 61 Year
  Sex: Female

DRUGS (16)
  1. TECFIDERA [Suspect]
     Indication: MULTIPLE SCLEROSIS
     Route: 048
  2. ALPRAZOLAM [Concomitant]
  3. ASPIRIN LOW DOSE [Concomitant]
  4. B-12 [Concomitant]
  5. CARVEDILOL [Concomitant]
  6. CURCUMIN EXTRACT [Concomitant]
  7. FISH OIL [Concomitant]
  8. GILENYA [Concomitant]
  9. HYDROCODONE-ACETAMINOPHEN [Concomitant]
  10. LEXAPRO [Concomitant]
  11. OMEGA 3 [Concomitant]
  12. SYNTHROID [Concomitant]
  13. VALSARTAN-HYDROCHLOROTHIAZIDE [Concomitant]
  14. VITAMIN D3 [Concomitant]
  15. WELLBUTRIN SR [Concomitant]
  16. ZETIA [Concomitant]

REACTIONS (3)
  - Constipation [Not Recovered/Not Resolved]
  - Headache [Unknown]
  - Abdominal pain [Not Recovered/Not Resolved]
